FAERS Safety Report 9730115 (Version 2)
Quarter: 2013Q4

REPORT INFORMATION
  Report Type: Spontaneous
  Country: US (occurrence: US)
  Receive Date: 20131204
  Receipt Date: 20131219
  Transmission Date: 20140711
  Serious: Yes (Death, Hospitalization)
  Sender: FDA-Public Use
  Company Number: US-BAXTER-2013BAX047739

PATIENT
  Age: 72 Year
  Sex: Male

DRUGS (14)
  1. DIANEAL LOW CALCIUM [Suspect]
     Indication: PERITONEAL DIALYSIS
     Route: 033
     Dates: start: 20131108, end: 20131206
  2. DIANEAL LOW CALCIUM [Suspect]
     Route: 033
     Dates: start: 20131108, end: 20131206
  3. DIANEAL LOW CALCIUM [Suspect]
     Route: 033
     Dates: start: 201311, end: 20131206
  4. DIANEAL LOW CALCIUM [Suspect]
     Route: 033
     Dates: start: 201311, end: 20131206
  5. DIANEAL LOW CALCIUM [Suspect]
     Route: 033
     Dates: start: 20131108, end: 20131206
  6. DIANEAL LOW CALCIUM [Suspect]
     Indication: PERITONEAL DIALYSIS
     Route: 033
     Dates: start: 20131108, end: 20131206
  7. DIANEAL LOW CALCIUM [Suspect]
     Route: 033
     Dates: start: 20131108, end: 20131206
  8. DIANEAL LOW CALCIUM [Suspect]
     Route: 033
     Dates: start: 201311, end: 20131206
  9. DIANEAL LOW CALCIUM [Suspect]
     Route: 033
     Dates: start: 201311, end: 20131206
  10. DIANEAL LOW CALCIUM [Suspect]
     Route: 033
     Dates: start: 20131108, end: 20131206
  11. DIANEAL LOW CALCIUM [Suspect]
     Indication: PERITONEAL DIALYSIS
     Route: 033
     Dates: start: 20131108, end: 20131206
  12. DIANEAL LOW CALCIUM [Suspect]
     Route: 033
     Dates: start: 20131108
  13. DIANEAL LOW CALCIUM [Suspect]
     Route: 033
     Dates: start: 201311
  14. DIANEAL LOW CALCIUM [Suspect]
     Route: 033
     Dates: start: 201311

REACTIONS (2)
  - Death [Fatal]
  - Peritonitis bacterial [Unknown]
